FAERS Safety Report 20936533 (Version 9)
Quarter: 2022Q3

REPORT INFORMATION
  Report Type: Report from Study
  Country: CA (occurrence: CA)
  Receive Date: 20220609
  Receipt Date: 20220919
  Transmission Date: 20221027
  Serious: Yes (Other)
  Sender: FDA-Public Use
  Company Number: CA-TAKEDA-2022TUS021135

PATIENT
  Age: 81 Year
  Sex: Female
  Weight: 37.3 kg

DRUGS (40)
  1. TEDUGLUTIDE [Suspect]
     Active Substance: TEDUGLUTIDE
     Indication: Short-bowel syndrome
     Dosage: 1 MILLIGRAM, QD
     Route: 058
     Dates: start: 20220328
  2. TEDUGLUTIDE [Suspect]
     Active Substance: TEDUGLUTIDE
     Indication: Short-bowel syndrome
     Dosage: 1 MILLIGRAM, QD
     Route: 058
     Dates: start: 20220328
  3. TEDUGLUTIDE [Suspect]
     Active Substance: TEDUGLUTIDE
     Indication: Short-bowel syndrome
     Dosage: 1 MILLIGRAM, QD
     Route: 058
     Dates: start: 20220328
  4. TEDUGLUTIDE [Suspect]
     Active Substance: TEDUGLUTIDE
     Indication: Short-bowel syndrome
     Dosage: 1 MILLIGRAM, QD
     Route: 058
     Dates: start: 20220328
  5. TEDUGLUTIDE [Suspect]
     Active Substance: TEDUGLUTIDE
     Dosage: 2 MILLIGRAM, QD
     Route: 058
     Dates: start: 20220328
  6. TEDUGLUTIDE [Suspect]
     Active Substance: TEDUGLUTIDE
     Dosage: 2 MILLIGRAM, QD
     Route: 058
     Dates: start: 20220328
  7. TEDUGLUTIDE [Suspect]
     Active Substance: TEDUGLUTIDE
     Dosage: 2 MILLIGRAM, QD
     Route: 058
     Dates: start: 20220328
  8. TEDUGLUTIDE [Suspect]
     Active Substance: TEDUGLUTIDE
     Dosage: 2 MILLIGRAM, QD
     Route: 058
     Dates: start: 20220328
  9. TEDUGLUTIDE [Suspect]
     Active Substance: TEDUGLUTIDE
     Dosage: 2 MILLIGRAM, QD
     Route: 058
     Dates: start: 20220328
  10. TEDUGLUTIDE [Suspect]
     Active Substance: TEDUGLUTIDE
     Dosage: 2 MILLIGRAM, QD
     Route: 058
     Dates: start: 20220328
  11. TEDUGLUTIDE [Suspect]
     Active Substance: TEDUGLUTIDE
     Dosage: 2 MILLIGRAM, QD
     Route: 058
     Dates: start: 20220328
  12. TEDUGLUTIDE [Suspect]
     Active Substance: TEDUGLUTIDE
     Dosage: 2 MILLIGRAM, QD
     Route: 058
     Dates: start: 20220328
  13. TEDUGLUTIDE [Suspect]
     Active Substance: TEDUGLUTIDE
     Dosage: 1 MILLIGRAM, 1/WEEK
     Route: 058
     Dates: start: 20220328
  14. TEDUGLUTIDE [Suspect]
     Active Substance: TEDUGLUTIDE
     Dosage: 1 MILLIGRAM, 1/WEEK
     Route: 058
     Dates: start: 20220328
  15. TEDUGLUTIDE [Suspect]
     Active Substance: TEDUGLUTIDE
     Dosage: 1 MILLIGRAM, 1/WEEK
     Route: 058
     Dates: start: 20220328
  16. TEDUGLUTIDE [Suspect]
     Active Substance: TEDUGLUTIDE
     Dosage: 1 MILLIGRAM, 1/WEEK
     Route: 058
     Dates: start: 20220328
  17. DICLOFENAC [Suspect]
     Active Substance: DICLOFENAC
     Indication: Product used for unknown indication
     Dosage: 9 MILLILITER, Q6HR
     Route: 065
     Dates: start: 20220620
  18. HYLO [Concomitant]
     Dosage: UNK
     Route: 047
  19. FUROSEMIDE [Concomitant]
     Active Substance: FUROSEMIDE
     Indication: Product used for unknown indication
     Dosage: 40 MILLIGRAM, BID
     Route: 065
  20. JUBLIA [Concomitant]
     Active Substance: EFINACONAZOLE
     Indication: Product used for unknown indication
     Dosage: UNK UNK, QD
     Route: 061
  21. Usana digestive enzyme [Concomitant]
     Indication: Probiotic therapy
     Dosage: 9 MILLILITER, Q6HR
     Route: 048
     Dates: start: 20220620
  22. TPN [Concomitant]
     Active Substance: AMINO ACIDS\DEXTROSE\ELECTROLYTES NOS\SOYBEAN OIL
     Indication: Product used for unknown indication
     Dosage: 1200 MILLILITER, QD
     Route: 042
     Dates: start: 20211022
  23. CODEINE PHOSPHATE [Concomitant]
     Active Substance: CODEINE PHOSPHATE
     Indication: Product used for unknown indication
     Dosage: 12 MILLILITER, TID
     Route: 065
  24. CODEINE PHOSPHATE [Concomitant]
     Active Substance: CODEINE PHOSPHATE
     Dosage: 4 MILLILITER, QD
     Route: 065
  25. CODEINE PHOSPHATE [Concomitant]
     Active Substance: CODEINE PHOSPHATE
     Dosage: 60 MILLIGRAM
     Route: 048
  26. CODEINE PHOSPHATE [Concomitant]
     Active Substance: CODEINE PHOSPHATE
     Dosage: 7.5 MILLILITER, TID
     Route: 065
  27. CODEINE PHOSPHATE [Concomitant]
     Active Substance: CODEINE PHOSPHATE
     Dosage: UNK
     Dates: start: 20220704
  28. CHILDRENS TYLENOL [Concomitant]
     Active Substance: ACETAMINOPHEN
     Indication: Stoma site pain
     Dosage: UNK
     Route: 065
  29. USANA MULTIMINERAL [Concomitant]
     Indication: Supplementation therapy
     Dosage: UNK UNK, QD
     Route: 048
  30. ASPIRIN [Concomitant]
     Active Substance: ASPIRIN
     Indication: Product used for unknown indication
     Dosage: 81 MILLIGRAM, QD
     Route: 065
  31. GRAVOL [Concomitant]
     Active Substance: DIMENHYDRINATE
     Indication: Product used for unknown indication
     Dosage: UNK
     Route: 065
  32. CITALOPRAM [Concomitant]
     Active Substance: CITALOPRAM HYDROBROMIDE
     Indication: Premenstrual syndrome
     Dosage: 60 MILLIGRAM, QD
     Route: 065
  33. TYLENOL [Concomitant]
     Active Substance: ACETAMINOPHEN
     Route: 065
  34. USANA AO PRO [Concomitant]
     Dosage: 9 MILLILITER, Q6HR
     Route: 048
     Dates: start: 20220620
  35. USANA AO PRO [Concomitant]
     Dosage: 9 MILLILITER, Q6HR
     Route: 048
     Dates: start: 20220720
  36. MORPHINE HYDROCHLORIDE [Concomitant]
     Active Substance: MORPHINE HYDROCHLORIDE
     Route: 065
  37. CODEINE SULFATE [Concomitant]
     Active Substance: CODEINE SULFATE
     Route: 065
  38. CODEINE PHOSPHATE ARROW [Concomitant]
     Dosage: UNK
     Route: 065
  39. ACETAMINOPHEN [Concomitant]
     Active Substance: ACETAMINOPHEN
     Indication: Premenstrual syndrome
     Dosage: 15 MILLILITER
     Route: 048
  40. MINT FUROSEMIDE [Concomitant]
     Indication: Oedema
     Dosage: 40 MILLIGRAM, BID
     Route: 065

REACTIONS (53)
  - Lumbar vertebral fracture [Unknown]
  - Syncope [Unknown]
  - Fall [Unknown]
  - Intestinal obstruction [Recovered/Resolved]
  - Malaise [Recovered/Resolved]
  - Fatigue [Not Recovered/Not Resolved]
  - Vision blurred [Not Recovered/Not Resolved]
  - Faeces hard [Recovered/Resolved]
  - Defaecation urgency [Recovered/Resolved]
  - Abdominal discomfort [Unknown]
  - Hiccups [Not Recovered/Not Resolved]
  - Lethargy [Not Recovered/Not Resolved]
  - Diarrhoea [Not Recovered/Not Resolved]
  - Stress [Recovering/Resolving]
  - Stoma site pain [Recovering/Resolving]
  - Peripheral swelling [Not Recovered/Not Resolved]
  - Joint swelling [Recovered/Resolved]
  - Gastrointestinal stoma output abnormal [Recovering/Resolving]
  - Asthenia [Not Recovered/Not Resolved]
  - Stoma site dermatitis [Recovering/Resolving]
  - Stoma site inflammation [Recovering/Resolving]
  - Depression [Not Recovered/Not Resolved]
  - Hot flush [Recovering/Resolving]
  - Weight decreased [Unknown]
  - Contusion [Not Recovered/Not Resolved]
  - Therapy interrupted [Recovered/Resolved]
  - Pain [Not Recovered/Not Resolved]
  - Feeling abnormal [Not Recovered/Not Resolved]
  - Compression fracture [Unknown]
  - Obstructive defaecation [Not Recovered/Not Resolved]
  - Frequent bowel movements [Unknown]
  - Balance disorder [Recovering/Resolving]
  - Mobility decreased [Recovering/Resolving]
  - Underweight [Not Recovered/Not Resolved]
  - Anxiety [Unknown]
  - Hypersomnia [Not Recovered/Not Resolved]
  - Rash [Unknown]
  - Headache [Recovering/Resolving]
  - Abdominal pain upper [Recovered/Resolved]
  - Decreased appetite [Not Recovered/Not Resolved]
  - Vomiting [Recovered/Resolved]
  - Nausea [Recovered/Resolved]
  - Flatulence [Recovering/Resolving]
  - Abdominal distension [Not Recovered/Not Resolved]
  - Oedema peripheral [Not Recovered/Not Resolved]
  - Device leakage [Recovered/Resolved]
  - Medication error [Unknown]
  - Product dose omission issue [Unknown]
  - Wrong technique in product usage process [Not Recovered/Not Resolved]
  - Back pain [Not Recovered/Not Resolved]
  - Apathy [Not Recovered/Not Resolved]
  - Mood swings [Not Recovered/Not Resolved]
  - Oedema [Unknown]

NARRATIVE: CASE EVENT DATE: 20220101
